FAERS Safety Report 11347204 (Version 1)
Quarter: 2015Q3

REPORT INFORMATION
  Report Type: Spontaneous
  Country: US (occurrence: US)
  Receive Date: 20150803
  Receipt Date: 20150803
  Transmission Date: 20151125
  Serious: No
  Sender: FDA-Public Use
  Company Number: US-ELI_LILLY_AND_COMPANY-US201104008160

PATIENT
  Age: 67 Year
  Sex: Male

DRUGS (1)
  1. STRATTERA [Suspect]
     Active Substance: ATOMOXETINE HYDROCHLORIDE
     Indication: OFF LABEL USE
     Dosage: 40 MG, UNK
     Dates: start: 20110413

REACTIONS (3)
  - Off label use [Unknown]
  - Expired product administered [Unknown]
  - Insomnia [Unknown]
